FAERS Safety Report 24529656 (Version 2)
Quarter: 2025Q1

REPORT INFORMATION
  Report Type: Spontaneous
  Country: DE (occurrence: DE)
  Receive Date: 20241021
  Receipt Date: 20250117
  Transmission Date: 20250408
  Serious: Yes (Other)
  Sender: BRISTOL-MYERS SQUIBB COMPANY
  Company Number: DE-BRISTOL-MYERS SQUIBB COMPANY-2024-161109

PATIENT
  Age: 76 Year
  Sex: Male
  Weight: 84 kg

DRUGS (2)
  1. NULOJIX [Suspect]
     Active Substance: BELATACEPT
     Indication: Renal transplant
     Route: 041
  2. NULOJIX [Suspect]
     Active Substance: BELATACEPT
     Route: 041

REACTIONS (4)
  - Renal disorder [Unknown]
  - Off label use [Unknown]
  - Malaise [Unknown]
  - Urinary retention [Unknown]
